FAERS Safety Report 5798683-7 (Version None)
Quarter: 2008Q2

REPORT INFORMATION
  Report Type: 
  Country: None (occurrence: None)
  Receive Date: 20080630
  Receipt Date: 20080617
  Transmission Date: 20081010
  Serious: Yes (Death, Other)
  Sender: FDA-Public Use
  Company Number: 2008AL007441

PATIENT
  Age: 21 Year
  Sex: Female

DRUGS (6)
  1. DIAZEPAM TABLETS UPS, 10 MG (PUREPAC) (DIAZEPAM TABLETS USP, 10 MG (PU [Suspect]
     Dosage: PO
     Route: 048
  2. PARAGORIC LIQUID USP (ALPHARMA) (PAREGORIC LIQUID USP (ALPHARMA) [Suspect]
     Dosage: PO
     Route: 048
  3. METHAMPHETAMINE HYDROCHLORIDE [Concomitant]
  4. COCAINE [Concomitant]
  5. LEVAMISOLE [Concomitant]
  6. METHYLENEDIOXYAMPHETAMINE [Concomitant]

REACTIONS (1)
  - DRUG TOXICITY [None]
